FAERS Safety Report 4379794-X (Version None)
Quarter: 2004Q2

REPORT INFORMATION
  Report Type: 
  Country: None (occurrence: None)
  Receive Date: 20040614
  Receipt Date: 20040528
  Transmission Date: 20050107
  Serious: Yes (Hospitalization)
  Sender: FDA-Public Use
  Company Number: 198988

PATIENT
  Age: 57 Year
  Sex: Female
  Weight: 90.2658 kg

DRUGS (10)
  1. AVONEX ^BIOGEN^ [Suspect]
     Indication: MULTIPLE SCLEROSIS
     Dates: start: 19990901, end: 20040101
  2. AVONEX ^BIOGEN^ [Suspect]
     Indication: MULTIPLE SCLEROSIS
     Dates: start: 20040101
  3. CELEBREX [Concomitant]
  4. GLUCOPHAGE ^UNS^ [Concomitant]
  5. AVANDAMET [Concomitant]
  6. DARVOCET-N 100 [Concomitant]
  7. CARDIZEM [Concomitant]
  8. ASPIRIN [Concomitant]
  9. MONOPRIL [Concomitant]
  10. LOVASTATIN [Concomitant]

REACTIONS (9)
  - AMNESIA [None]
  - ANXIETY [None]
  - BLOOD GLUCOSE INCREASED [None]
  - CONDITION AGGRAVATED [None]
  - DEPRESSION [None]
  - EMOTIONAL DISTRESS [None]
  - HEARING IMPAIRED [None]
  - PARAESTHESIA [None]
  - WEIGHT INCREASED [None]
